FAERS Safety Report 19078182 (Version 4)
Quarter: 2023Q1

REPORT INFORMATION
  Report Type: Report from Study
  Country: CA (occurrence: CA)
  Receive Date: 20210331
  Receipt Date: 20230301
  Transmission Date: 20230417
  Serious: Yes (Other)
  Sender: FDA-Public Use
  Company Number: CA-JNJFOC-20200721767

PATIENT
  Age: 66 Year
  Sex: Female

DRUGS (1)
  1. REMICADE [Suspect]
     Active Substance: INFLIXIMAB
     Indication: Crohn^s disease
     Dosage: BATCH NUMBER: MDM94011, MCM88011 EXPIRY DATE: EXPIRY: 31-JUL-2023, 28-FEB-2025, 31-MAR-2025, 28-FEB-
     Route: 041
     Dates: start: 20180329

REACTIONS (9)
  - Foot deformity [Recovering/Resolving]
  - COVID-19 [Recovering/Resolving]
  - Crohn^s disease [Not Recovered/Not Resolved]
  - Post-acute COVID-19 syndrome [Unknown]
  - Peripheral swelling [Recovering/Resolving]
  - Infusion site extravasation [Recovering/Resolving]
  - Gait disturbance [Unknown]
  - Post procedural swelling [Unknown]
  - Contusion [Not Recovered/Not Resolved]

NARRATIVE: CASE EVENT DATE: 20200711
